FAERS Safety Report 7523550-8 (Version None)
Quarter: 2011Q2

REPORT INFORMATION
  Report Type: 
  Country: None (occurrence: None)
  Receive Date: 20110601
  Receipt Date: 20110601
  Transmission Date: 20111010
  Serious: Yes (Other)
  Sender: FDA-Public Use
  Company Number: None

PATIENT
  Age: 53 Year
  Sex: Female

DRUGS (2)
  1. BUPROPION HCL [Suspect]
     Dosage: 150MG QAM PO
     Route: 048
     Dates: start: 20110530
  2. BUPROPION HCL [Suspect]
     Dosage: 150MG QAM PO
     Route: 048
     Dates: start: 20110529

REACTIONS (5)
  - AGITATION [None]
  - FEELING ABNORMAL [None]
  - ANGER [None]
  - MANIA [None]
  - ABNORMAL BEHAVIOUR [None]
